FAERS Safety Report 18104128 (Version 1)
Quarter: 2020Q3

REPORT INFORMATION
  Report Type: Spontaneous
  Country: US (occurrence: US)
  Receive Date: 20200801
  Receipt Date: 20200801
  Transmission Date: 20201103
  Serious: Yes (Death)
  Sender: FDA-Public Use
  Company Number: None

PATIENT
  Age: 69 Year
  Sex: Female
  Weight: 40.5 kg

DRUGS (18)
  1. COMPRO [Concomitant]
     Active Substance: PROCHLORPERAZINE
  2. SILVADENE [Concomitant]
     Active Substance: SILVER SULFADIAZINE
  3. ZOLPIDEM [Concomitant]
     Active Substance: ZOLPIDEM TARTRATE
  4. ALIMTA [Suspect]
     Active Substance: PEMETREXED DISODIUM
     Indication: BONE CANCER
     Dates: start: 20191231, end: 20200730
  5. OXYCODONE [Concomitant]
     Active Substance: OXYCODONE
  6. COMPAZINE [Concomitant]
     Active Substance: PROCHLORPERAZINE MALEATE
  7. DECADRON [Concomitant]
     Active Substance: DEXAMETHASONE
  8. SERTRALINE [Concomitant]
     Active Substance: SERTRALINE HYDROCHLORIDE
  9. ZOFRAN [Concomitant]
     Active Substance: ONDANSETRON HYDROCHLORIDE
  10. XGEVA [Concomitant]
     Active Substance: DENOSUMAB
  11. XANAX [Concomitant]
     Active Substance: ALPRAZOLAM
  12. BENADRYL [Concomitant]
     Active Substance: DIPHENHYDRAMINE HYDROCHLORIDE
  13. GELCLAIR [Concomitant]
  14. ZARXIO [Concomitant]
     Active Substance: FILGRASTIM-SNDZ
  15. OSCAL?D [Concomitant]
  16. KEYTRUDA [Suspect]
     Active Substance: PEMBROLIZUMAB
     Indication: LUNG NEOPLASM MALIGNANT
     Dates: start: 20191231, end: 20200730
  17. NORCO [Concomitant]
     Active Substance: ACETAMINOPHEN\HYDROCODONE BITARTRATE
  18. CARBOPLATIN. [Concomitant]
     Active Substance: CARBOPLATIN

REACTIONS (1)
  - Death [None]

NARRATIVE: CASE EVENT DATE: 20200730
